FAERS Safety Report 8425826-9 (Version None)
Quarter: 2012Q2

REPORT INFORMATION
  Report Type: 
  Country: None (occurrence: None)
  Receive Date: 20120531
  Receipt Date: 20120517
  Transmission Date: 20120825
  Serious: Yes (Other)
  Sender: FDA-Public Use
  Company Number: 2012SP027881

PATIENT
  Age: 57 Year
  Sex: Male
  Weight: 66.5 kg

DRUGS (13)
  1. PEGINTERFERON ALFA-2B [Suspect]
     Indication: HEPATITIS C
     Dosage: 300 MG;BID
     Dates: start: 20111006
  2. METHADERM [Concomitant]
  3. OXAROL [Concomitant]
  4. PEGINTERFERON ALFA-2B [Suspect]
     Indication: HEPATITIS C
     Dosage: 100 MCG;QW
     Dates: start: 20111006
  5. UREPEARL [Concomitant]
  6. MICARDIS [Concomitant]
  7. LOXONIN [Concomitant]
  8. RIBAVIRIN [Suspect]
     Indication: HEPATITIS C
     Dosage: 800 MG;QD
     Dates: start: 20111006
  9. OXAROL [Concomitant]
  10. OLOPATADINE HCL [Concomitant]
  11. METHADERM [Concomitant]
  12. FAMOTIDINE [Concomitant]
  13. NORVASC [Concomitant]

REACTIONS (1)
  - HEPATIC NEOPLASM MALIGNANT [None]
